FAERS Safety Report 8129679-8 (Version None)
Quarter: 2012Q1

REPORT INFORMATION
  Report Type: 
  Country: None (occurrence: None)
  Receive Date: 20120210
  Receipt Date: 20120201
  Transmission Date: 20120608
  Serious: Yes (Other)
  Sender: FDA-Public Use
  Company Number: MX-ELI_LILLY_AND_COMPANY-MX201202001152

PATIENT
  Age: 77 Year
  Sex: Female

DRUGS (6)
  1. TRITAZIDE [Concomitant]
     Dosage: 5/25
  2. LOPRESSOR [Concomitant]
     Dosage: 100 DF, UNKNOWN
  3. BI EUGLUCON M [Concomitant]
     Dosage: 500 DF, UNKNOWN
  4. ASPIRIN [Concomitant]
     Dosage: 81 MG, UNKNOWN
  5. HUMULIN N [Suspect]
     Indication: DIABETES MELLITUS
     Dosage: 27 IU, UNKNOWN
     Route: 058
     Dates: start: 20070101
  6. FOLIVITAL [Concomitant]
     Dosage: 4 MG, UNKNOWN

REACTIONS (3)
  - SPINAL OPERATION [None]
  - STENT PLACEMENT [None]
  - NEURALGIA [None]
